FAERS Safety Report 19402669 (Version 2)
Quarter: 2021Q3

REPORT INFORMATION
  Report Type: Spontaneous
  Country: US (occurrence: US)
  Receive Date: 20210611
  Receipt Date: 20210806
  Transmission Date: 20211014
  Serious: No
  Sender: FDA-Public Use
  Company Number: US-CELGENEUS-USA-20210601221

PATIENT
  Sex: Female
  Weight: 58.57 kg

DRUGS (3)
  1. REVLIMID [Suspect]
     Active Substance: LENALIDOMIDE
     Indication: PLASMA CELL MYELOMA
     Dosage: 10 MILLIGRAM
     Route: 048
     Dates: start: 20210501
  2. DEXAMETHASONE. [Concomitant]
     Active Substance: DEXAMETHASONE
     Indication: PRODUCT USED FOR UNKNOWN INDICATION
     Route: 065
  3. LEXAPRO [Concomitant]
     Active Substance: ESCITALOPRAM OXALATE
     Indication: PRODUCT USED FOR UNKNOWN INDICATION
     Route: 065

REACTIONS (14)
  - Dyspnoea [Unknown]
  - Headache [Unknown]
  - Electric shock [Unknown]
  - Blood uric acid increased [Unknown]
  - Bone pain [Unknown]
  - Eye pain [Unknown]
  - Decreased appetite [Unknown]
  - Fatigue [Unknown]
  - Arthralgia [Unknown]
  - Abdominal distension [Unknown]
  - Renal disorder [Unknown]
  - Rash [Recovered/Resolved]
  - Constipation [Unknown]
  - Insomnia [Unknown]

NARRATIVE: CASE EVENT DATE: 2021
